FAERS Safety Report 6519660-4 (Version None)
Quarter: 2009Q4

REPORT INFORMATION
  Report Type: 
  Country: None (occurrence: None)
  Receive Date: 20091228
  Receipt Date: 20091216
  Transmission Date: 20100525
  Serious: Yes (Other)
  Sender: FDA-Public Use
  Company Number: US-PFIZER INC-2009313148

PATIENT
  Sex: Female
  Weight: 58.05 kg

DRUGS (8)
  1. LIPITOR [Suspect]
     Dosage: 10 MG, 1X/DAY
     Route: 048
  2. LEXAPRO [Suspect]
     Indication: FEELING ABNORMAL
     Dosage: UNK
     Dates: start: 20090101
  3. ASPIRIN [Concomitant]
     Dosage: 81 MG, 1X/DAY
  4. CALCIUM [Concomitant]
     Dosage: FREQUENCY: 4X/DAY,
  5. COENZYME Q10 [Concomitant]
     Dosage: UNK
  6. D3-VICOTRAT [Concomitant]
     Dosage: UNIT DOSE: 2000;
  7. CENTRUM SILVER [Suspect]
     Dosage: UNK
  8. LUTEIN/OMEGA-3 TRIGLYCERIDES/VIT D/ZEAXANTHIN [Concomitant]
     Dosage: UNK

REACTIONS (6)
  - ALOPECIA [None]
  - ARTHRITIS [None]
  - HYPOACUSIS [None]
  - SCOLIOSIS [None]
  - SPINAL COLUMN STENOSIS [None]
  - TINNITUS [None]
